FAERS Safety Report 9049515 (Version 1)
Quarter: 2013Q1

REPORT INFORMATION
  Report Type: Spontaneous
  Country: IT (occurrence: IT)
  Receive Date: 20130205
  Receipt Date: 20130205
  Transmission Date: 20140127
  Serious: Yes (Hospitalization)
  Sender: FDA-Public Use
  Company Number: IT-TEVA-382918ISR

PATIENT
  Age: 80 None
  Sex: Female

DRUGS (11)
  1. CEFTRIAXONE [Suspect]
     Indication: BRONCHOPNEUMONIA
     Dosage: 1 DOSAGE FORMS DAILY;
     Route: 030
     Dates: start: 20121126, end: 20121201
  2. LEVOFLOXACINA [Suspect]
     Indication: BRONCHOPNEUMONIA
     Dosage: 1 DOSAGE FORMS DAILY;
     Route: 048
     Dates: start: 20121121, end: 20121125
  3. AUGMENTIN [Concomitant]
     Dosage: AMOXICILLIN 875 MG + CALVULANIC ACID 125 MG
     Dates: start: 20121117, end: 20121120
  4. AUGMENTIN [Concomitant]
     Dates: start: 20121117, end: 20121120
  5. NORVASC [Concomitant]
  6. ALMARYTM [Concomitant]
  7. COAPROVEL [Concomitant]
     Dosage: IRBESARTAN 150 MG + HYDROCHLOROTHIAZIDE 12.5 MG
  8. COAPROVEL [Concomitant]
  9. TIKLID [Concomitant]
  10. ONGLYZA [Concomitant]
  11. REPAGLINIDE [Concomitant]

REACTIONS (1)
  - Renal failure acute [Unknown]
